FAERS Safety Report 5730214-X (Version None)
Quarter: 2008Q2

REPORT INFORMATION
  Report Type: 
  Country: None (occurrence: None)
  Receive Date: 20080430
  Receipt Date: 20080223
  Transmission Date: 20081010
  Serious: No
  Sender: FDA-Public Use
  Company Number: PHEH2008US02156

PATIENT
  Age: 38 Year
  Sex: Male

DRUGS (2)
  1. TYZEKA [Suspect]
     Indication: HEPATITIS B
     Dosage: ORAL
     Route: 048
     Dates: start: 20070809, end: 20080221
  2. PEGASYS [Suspect]
     Dates: start: 20071130, end: 20080211

REACTIONS (2)
  - DRUG INEFFECTIVE [None]
  - NEUROPATHY PERIPHERAL [None]
